FAERS Safety Report 25673741 (Version 2)
Quarter: 2025Q4

REPORT INFORMATION
  Report Type: Spontaneous
  Country: JP (occurrence: JP)
  Receive Date: 20250813
  Receipt Date: 20251226
  Transmission Date: 20260118
  Serious: Yes (Hospitalization, Other)
  Sender: MERCK SHARP & DOHME LLC
  Company Number: JP-009507513-2316188

PATIENT
  Sex: Female

DRUGS (1)
  1. KEYTRUDA [Suspect]
     Active Substance: PEMBROLIZUMAB
     Indication: Uterine cancer
     Route: 041
     Dates: start: 20250617, end: 20250708

REACTIONS (7)
  - Altered state of consciousness [Recovering/Resolving]
  - Adrenal disorder [Unknown]
  - Blood creatine phosphokinase increased [Unknown]
  - Pyrexia [Unknown]
  - Disseminated intravascular coagulation [Unknown]
  - Blood fibrinogen abnormal [Unknown]
  - Platelet disorder [Unknown]

NARRATIVE: CASE EVENT DATE: 20250714
